FAERS Safety Report 26215606 (Version 1)
Quarter: 2025Q4

REPORT INFORMATION
  Report Type: Report from Study
  Country: US (occurrence: US)
  Receive Date: 20251231
  Receipt Date: 20251231
  Transmission Date: 20260117
  Serious: Yes (Hospitalization, Other)
  Sender: ACADIA PHARMACEUTICALS
  Company Number: US-ACADIA PHARMACEUTICALS INC.-ACA-2025-PIM-012915

PATIENT
  Sex: Male

DRUGS (17)
  1. NUPLAZID [Suspect]
     Active Substance: PIMAVANSERIN TARTRATE
     Indication: Parkinson^s disease
     Dosage: 10 MILLIGRAM, QD
     Route: 048
     Dates: start: 20251017
  2. NUPLAZID [Suspect]
     Active Substance: PIMAVANSERIN TARTRATE
     Indication: Hallucination
  3. NUPLAZID [Suspect]
     Active Substance: PIMAVANSERIN TARTRATE
     Indication: Parkinson^s disease
     Dosage: 34 MILLIGRAM, QD, TAKE 1 CAPSULE BY MOUTH IN THE MORNING
     Route: 065
     Dates: start: 20251125
  4. NUPLAZID [Suspect]
     Active Substance: PIMAVANSERIN TARTRATE
     Indication: Hallucination
  5. SINEMET [Concomitant]
     Active Substance: CARBIDOPA\LEVODOPA
     Dosage: UNK
  6. DIAMOX SEQUELS [Concomitant]
     Active Substance: ACETAZOLAMIDE
  7. DOXYCYCLINE [Concomitant]
     Active Substance: DOXYCYCLINE
  8. ERYTHROMYCIN [Concomitant]
     Active Substance: ERYTHROMYCIN
  9. METOPROLOL [Concomitant]
     Active Substance: METOPROLOL
  10. MORNIFLUMATE [Concomitant]
     Active Substance: MORNIFLUMATE
  11. ACETAZOLAMIDE [Concomitant]
     Active Substance: ACETAZOLAMIDE
     Dosage: TAKE 1 TABLET BY MOUTH IN THE MORNING AND 1 TABLET IN THE EVENING.
     Route: 048
     Dates: start: 20250510
  12. CARBIDOPA\LEVODOPA [Concomitant]
     Active Substance: CARBIDOPA\LEVODOPA
     Dosage: TAKE 1 TABLET BY MOUTH IN THE MORNING AND 1 TABLET AT NOON AND 1 TABLET IN THE EVENING
     Route: 048
     Dates: start: 20250521
  13. DOXYCYCLINE HYCLATE [Concomitant]
     Active Substance: DOXYCYCLINE HYCLATE
     Dosage: TAKE 0.5 TABLETS BY MOUTH DAILY
     Route: 048
     Dates: start: 20141012
  14. ERYTHROMYCIN [Concomitant]
     Active Substance: ERYTHROMYCIN
     Dosage: APPLY 1/4 INCH INTO BOTH EYES EVERY EVENING
     Dates: start: 20240509
  15. METOPROLOL SUCCINATE [Concomitant]
     Active Substance: METOPROLOL SUCCINATE
     Dosage: TAKE 1 TABLET BY MOUTH ONCE DAILY ORAI FOR 30 DAYS
     Route: 048
     Dates: start: 20230606
  16. VITAMINS [Concomitant]
     Active Substance: VITAMINS
     Dosage: TAKE 1 TABLET BY MOUTH DAILY
     Route: 048
  17. TAMSULOSIN [Concomitant]
     Active Substance: TAMSULOSIN
     Dosage: 0.4 MILLIGRAM, QD, TAKE 1 CAPSULE BY MOUTH DAILY.
     Route: 048
     Dates: start: 20160428

REACTIONS (7)
  - Malignant melanoma [Unknown]
  - Hallucination [Not Recovered/Not Resolved]
  - Tumour excision [Unknown]
  - Asthenia [Unknown]
  - Weight decreased [Unknown]
  - Fall [Unknown]
  - Underdose [Unknown]
